FAERS Safety Report 8555707-1 (Version None)
Quarter: 2012Q3

REPORT INFORMATION
  Report Type: 
  Country: None (occurrence: None)
  Receive Date: 20120801
  Receipt Date: 20120723
  Transmission Date: 20120928
  Serious: Yes (Hospitalization, Other)
  Sender: FDA-Public Use
  Company Number: US-009507513-1207USA010608

PATIENT

DRUGS (10)
  1. RAMIPRIL [Suspect]
     Dosage: 2.5 MG, ONCE
     Route: 048
  2. RAMIPRIL [Suspect]
     Dosage: UNK
     Route: 048
  3. CORDARONE [Suspect]
     Dosage: 400 MG, 5 DAYS/7 DAYS
     Route: 048
  4. ESCITALOPRAM OXALATE [Concomitant]
  5. ZOCOR [Suspect]
     Dosage: 20 MG, ONCE
     Route: 048
  6. ASPIRIN [Concomitant]
  7. CORDARONE [Suspect]
     Route: 048
  8. PLAVIX [Concomitant]
  9. NEXIUM [Concomitant]
  10. LASIX [Concomitant]

REACTIONS (3)
  - CYTOLYTIC HEPATITIS [None]
  - HEAD INJURY [None]
  - FALL [None]
